FAERS Safety Report 18080630 (Version 2)
Quarter: 2022Q3

REPORT INFORMATION
  Report Type: Spontaneous
  Country: ES (occurrence: ES)
  Receive Date: 20200728
  Receipt Date: 20220711
  Transmission Date: 20221027
  Serious: Yes (Death, Hospitalization, Other)
  Sender: FDA-Public Use
  Company Number: ES-CELGENE-ESP-20191004787

PATIENT
  Age: 53 Year
  Sex: Female
  Weight: 62.5 kg

DRUGS (49)
  1. GEMCITABINE HYDROCHLORIDE [Suspect]
     Active Substance: GEMCITABINE HYDROCHLORIDE
     Indication: Pancreatic carcinoma metastatic
     Dosage: 1000 MG/M2
     Route: 041
     Dates: start: 20190715, end: 20190715
  2. GEMCITABINE HYDROCHLORIDE [Suspect]
     Active Substance: GEMCITABINE HYDROCHLORIDE
     Dosage: 1000 MG/M2
     Route: 041
     Dates: start: 20190723, end: 20190723
  3. GEMCITABINE HYDROCHLORIDE [Suspect]
     Active Substance: GEMCITABINE HYDROCHLORIDE
     Dosage: 1000 MG/M2
     Route: 041
     Dates: start: 20190801, end: 20190801
  4. GEMCITABINE HYDROCHLORIDE [Suspect]
     Active Substance: GEMCITABINE HYDROCHLORIDE
     Dosage: 1000 MG/M2
     Route: 041
     Dates: start: 20190814, end: 20190814
  5. GEMCITABINE HYDROCHLORIDE [Suspect]
     Active Substance: GEMCITABINE HYDROCHLORIDE
     Dosage: 1000 MG/M2
     Route: 041
     Dates: start: 20190821, end: 20190821
  6. GEMCITABINE HYDROCHLORIDE [Suspect]
     Active Substance: GEMCITABINE HYDROCHLORIDE
     Dosage: 1000 MG/M2
     Route: 041
     Dates: start: 20190828, end: 20190828
  7. GEMCITABINE HYDROCHLORIDE [Suspect]
     Active Substance: GEMCITABINE HYDROCHLORIDE
     Dosage: 1000 MG/M2
     Route: 041
     Dates: start: 20190909, end: 20190909
  8. GEMCITABINE HYDROCHLORIDE [Suspect]
     Active Substance: GEMCITABINE HYDROCHLORIDE
     Dosage: 1000 MG/M2
     Route: 041
     Dates: start: 20190916, end: 20190916
  9. GEMCITABINE HYDROCHLORIDE [Suspect]
     Active Substance: GEMCITABINE HYDROCHLORIDE
     Dosage: 1000 MG/M2
     Route: 041
     Dates: start: 20190923, end: 20190923
  10. GEMCITABINE HYDROCHLORIDE [Suspect]
     Active Substance: GEMCITABINE HYDROCHLORIDE
     Dosage: 1000 MG/M2
     Route: 041
     Dates: start: 20191007, end: 20191007
  11. GEMCITABINE HYDROCHLORIDE [Suspect]
     Active Substance: GEMCITABINE HYDROCHLORIDE
     Dosage: 1000 MG/M2
     Route: 041
     Dates: start: 20191104, end: 20191104
  12. GEMCITABINE HYDROCHLORIDE [Suspect]
     Active Substance: GEMCITABINE HYDROCHLORIDE
     Dosage: 1000 MG/M2
     Route: 041
     Dates: start: 20200212, end: 20200212
  13. GEMCITABINE HYDROCHLORIDE [Suspect]
     Active Substance: GEMCITABINE HYDROCHLORIDE
     Dosage: 1000 MG/M2
     Route: 041
     Dates: start: 20200226
  14. GEMCITABINE HYDROCHLORIDE [Suspect]
     Active Substance: GEMCITABINE HYDROCHLORIDE
     Dosage: 1000 MG/M2
     Dates: start: 20191021, end: 20191021
  15. GEMCITABINE HYDROCHLORIDE [Suspect]
     Active Substance: GEMCITABINE HYDROCHLORIDE
     Dosage: 600 MG/M2
     Dates: start: 20191118
  16. GEMCITABINE HYDROCHLORIDE [Suspect]
     Active Substance: GEMCITABINE HYDROCHLORIDE
     Dosage: 1000 MG/M2
     Dates: start: 20191014, end: 20191014
  17. GEMCITABINE HYDROCHLORIDE [Suspect]
     Active Substance: GEMCITABINE HYDROCHLORIDE
     Dosage: 800 MG/M2
     Dates: start: 20191111, end: 20191111
  18. OLECLUMAB [Suspect]
     Active Substance: OLECLUMAB
     Indication: Pancreatic carcinoma metastatic
     Dosage: 3000 MG
     Route: 042
     Dates: start: 20190715, end: 20190715
  19. OLECLUMAB [Suspect]
     Active Substance: OLECLUMAB
     Dosage: 3000 MG
     Route: 042
     Dates: start: 20190801, end: 20190801
  20. OLECLUMAB [Suspect]
     Active Substance: OLECLUMAB
     Dosage: 3000 MG
     Route: 042
     Dates: start: 20190814, end: 20190814
  21. OLECLUMAB [Suspect]
     Active Substance: OLECLUMAB
     Dosage: 3000 MG
     Route: 042
     Dates: start: 20190828, end: 20190828
  22. OLECLUMAB [Suspect]
     Active Substance: OLECLUMAB
     Dosage: 3000 MG
     Route: 042
     Dates: start: 20190909, end: 20190909
  23. OLECLUMAB [Suspect]
     Active Substance: OLECLUMAB
     Dosage: 3000 MG
     Route: 042
     Dates: start: 20191007, end: 20191007
  24. OLECLUMAB [Suspect]
     Active Substance: OLECLUMAB
     Dosage: 3000 MG
     Route: 042
     Dates: start: 20191104, end: 20191104
  25. OLECLUMAB [Suspect]
     Active Substance: OLECLUMAB
     Dosage: 3000 MG
     Route: 042
     Dates: start: 20191202, end: 20191202
  26. OLECLUMAB [Suspect]
     Active Substance: OLECLUMAB
     Dosage: 3000 MG
     Route: 042
     Dates: start: 20191230, end: 20191230
  27. OLECLUMAB [Suspect]
     Active Substance: OLECLUMAB
     Dosage: 3000 MG
     Route: 042
     Dates: start: 20200226
  28. ABRAXANE [Suspect]
     Active Substance: PACLITAXEL
     Indication: Pancreatic carcinoma metastatic
     Dosage: 125 MG/M2
     Route: 041
     Dates: start: 20190715, end: 20190715
  29. ABRAXANE [Suspect]
     Active Substance: PACLITAXEL
     Dosage: 125 MG/M2
     Route: 041
     Dates: start: 20190723, end: 20190723
  30. ABRAXANE [Suspect]
     Active Substance: PACLITAXEL
     Dosage: 125 MG/M2
     Route: 041
     Dates: start: 20190801, end: 20190801
  31. ABRAXANE [Suspect]
     Active Substance: PACLITAXEL
     Dosage: 125 MG/M2
     Route: 041
     Dates: start: 20190814, end: 20190814
  32. ABRAXANE [Suspect]
     Active Substance: PACLITAXEL
     Dosage: 125 MG/M2
     Route: 041
     Dates: start: 20190821, end: 20190821
  33. ABRAXANE [Suspect]
     Active Substance: PACLITAXEL
     Dosage: 125 MG/M2
     Route: 041
     Dates: start: 20190828, end: 20190828
  34. ABRAXANE [Suspect]
     Active Substance: PACLITAXEL
     Dosage: 125 MG/M2
     Route: 041
     Dates: start: 20190909, end: 20190909
  35. ABRAXANE [Suspect]
     Active Substance: PACLITAXEL
     Dosage: 125 MG/M2
     Route: 041
     Dates: start: 20190916, end: 20190916
  36. ABRAXANE [Suspect]
     Active Substance: PACLITAXEL
     Dosage: 125 MG/M2
     Route: 041
     Dates: start: 20190923, end: 20190923
  37. ABRAXANE [Suspect]
     Active Substance: PACLITAXEL
     Dosage: 125 MG/M2
     Route: 041
     Dates: start: 20191007, end: 20191007
  38. ABRAXANE [Suspect]
     Active Substance: PACLITAXEL
     Dosage: 125 MG/M2
     Route: 041
     Dates: start: 20191014, end: 20191014
  39. ABRAXANE [Suspect]
     Active Substance: PACLITAXEL
     Dosage: 125 MG/M2
     Route: 041
     Dates: start: 20191021, end: 20191021
  40. ABRAXANE [Suspect]
     Active Substance: PACLITAXEL
     Dosage: 125 MG/M2
     Route: 041
     Dates: start: 20191104, end: 20191104
  41. ABRAXANE [Suspect]
     Active Substance: PACLITAXEL
     Dosage: 100 MG/M2
     Route: 041
     Dates: start: 20191111, end: 20191111
  42. ABRAXANE [Suspect]
     Active Substance: PACLITAXEL
     Dosage: 75 MG/M2
     Route: 041
     Dates: start: 20191118, end: 20191118
  43. ABRAXANE [Suspect]
     Active Substance: PACLITAXEL
     Dosage: 75 MG/M2
     Route: 041
     Dates: start: 20191202, end: 20191202
  44. ABRAXANE [Suspect]
     Active Substance: PACLITAXEL
     Dosage: 75 MG/M2
     Route: 041
     Dates: start: 20191216, end: 20191216
  45. ABRAXANE [Suspect]
     Active Substance: PACLITAXEL
     Dosage: 75 MG/M2
     Route: 041
     Dates: start: 20191230, end: 20191230
  46. ABRAXANE [Suspect]
     Active Substance: PACLITAXEL
     Dosage: 75 MG/M2
     Route: 041
     Dates: start: 20200226
  47. ABRAXANE [Suspect]
     Active Substance: PACLITAXEL
     Dosage: 125 MG/M2
     Dates: start: 20191007, end: 20191009
  48. DEXAM [DEXAMETHASONE] [Concomitant]
     Indication: Chemotherapy side effect prophylaxis
     Dosage: 4 MG
     Dates: start: 20190715, end: 20200226
  49. ACETA [PARACETAMOL] [Concomitant]
     Indication: Pain prophylaxis
     Dosage: 1 G
     Dates: start: 2019

REACTIONS (6)
  - Neoplasm progression [Fatal]
  - Gastrointestinal haemorrhage [Recovered/Resolved]
  - Anaemia [Recovered/Resolved]
  - White blood cell count decreased [Unknown]
  - Lymphocyte count decreased [Unknown]
  - Neutrophil count decreased [Unknown]

NARRATIVE: CASE EVENT DATE: 20190721
